FAERS Safety Report 7471774-0 (Version None)
Quarter: 2011Q2

REPORT INFORMATION
  Report Type: 
  Country: None (occurrence: None)
  Receive Date: 20110511
  Receipt Date: 20100421
  Transmission Date: 20111010
  Serious: No
  Sender: FDA-Public Use
  Company Number: A0856553A

PATIENT
  Sex: Female

DRUGS (2)
  1. TYKERB [Suspect]
     Dosage: 1000MG PER DAY
     Route: 065
     Dates: start: 20100311
  2. XELODA [Suspect]
     Dates: start: 20100311, end: 20100323

REACTIONS (2)
  - DIARRHOEA [None]
  - OEDEMA PERIPHERAL [None]
